FAERS Safety Report 8687719 (Version 3)
Quarter: 2013Q4

REPORT INFORMATION
  Report Type: Spontaneous
  Country: US (occurrence: US)
  Receive Date: 20120727
  Receipt Date: 20131101
  Transmission Date: 20140711
  Serious: No
  Sender: FDA-Public Use
  Company Number: US-009507513-2012SP022881

PATIENT
  Sex: Female
  Weight: 78.47 kg

DRUGS (1)
  1. CLARITIN REDITABS [Suspect]
     Indication: SINUS DISORDER
     Dosage: 10 MG, UNKNOWN
     Route: 048

REACTIONS (2)
  - Somnolence [Unknown]
  - No therapeutic response [Unknown]
